FAERS Safety Report 13786504 (Version 1)
Quarter: 2017Q3

REPORT INFORMATION
  Report Type: Spontaneous
  Country: US (occurrence: US)
  Receive Date: 20170725
  Receipt Date: 20170725
  Transmission Date: 20171127
  Serious: No
  Sender: FDA-Public Use
  Company Number: None

PATIENT

DRUGS (2)
  1. CEFOXITIN [Suspect]
     Active Substance: CEFOXITIN SODIUM
     Dosage: DOSAGE FORM - INJECTABLE?TYPE - VIAL
     Route: 042
  2. CEFOXITIN [Suspect]
     Active Substance: CEFOXITIN SODIUM
     Dosage: DOSAGE FORM - INJECTABLE?TYPE - VIAL
     Route: 042

REACTIONS (1)
  - Product label confusion [None]
